FAERS Safety Report 6525034-2 (Version None)
Quarter: 2009Q4

REPORT INFORMATION
  Report Type: 
  Country: None (occurrence: None)
  Receive Date: 20091231
  Receipt Date: 20091231
  Transmission Date: 20100525
  Serious: Yes (Other)
  Sender: FDA-Public Use
  Company Number: None

PATIENT
  Age: 49 Year
  Sex: Female
  Weight: 58.9676 kg

DRUGS (1)
  1. TRAVATAN Z [Suspect]
     Indication: ANGLE CLOSURE GLAUCOMA
     Dosage: 1 DROP IN EACH EYE 1X DAILY @ BEDTIME OPHTHALMIC
     Route: 047
     Dates: start: 20091019, end: 20091230

REACTIONS (2)
  - BACK PAIN [None]
  - POSTNASAL DRIP [None]
